FAERS Safety Report 6711244-8 (Version None)
Quarter: 2010Q2

REPORT INFORMATION
  Report Type: 
  Country: None (occurrence: None)
  Receive Date: 20100505
  Receipt Date: 20100426
  Transmission Date: 20101027
  Serious: Yes (Hospitalization, Other)
  Sender: FDA-Public Use
  Company Number: CA-BAYER-201017648NA

PATIENT
  Age: 62 Year
  Sex: Male

DRUGS (4)
  1. AVELOX [Suspect]
     Indication: INFECTION
     Route: 048
  2. AVELOX [Suspect]
     Route: 048
  3. AVELOX [Suspect]
     Route: 048
     Dates: start: 20080101
  4. AVELOX [Suspect]
     Indication: DRUG USE FOR UNKNOWN INDICATION
     Route: 042

REACTIONS (6)
  - DRUG EFFECT DECREASED [None]
  - ERYTHEMA [None]
  - INFECTION [None]
  - INFUSION SITE PHLEBITIS [None]
  - NERVOUS SYSTEM DISORDER [None]
  - TREMOR [None]
